FAERS Safety Report 22379047 (Version 4)
Quarter: 2023Q2

REPORT INFORMATION
  Report Type: Report from Study
  Country: PK (occurrence: PK)
  Receive Date: 20230529
  Receipt Date: 20230627
  Transmission Date: 20230722
  Serious: Yes (Death, Other)
  Sender: FDA-Public Use
  Company Number: PK-TAKEDA-2023TUS052447

PATIENT

DRUGS (1)
  1. MOBOCERTINIB [Suspect]
     Active Substance: MOBOCERTINIB
     Indication: Lung neoplasm malignant
     Dosage: UNK
     Route: 065
     Dates: start: 20221109

REACTIONS (4)
  - Metastases to central nervous system [Fatal]
  - Respiratory failure [Fatal]
  - Pneumonia [Unknown]
  - Lung neoplasm malignant [Unknown]
